FAERS Safety Report 8472180-2 (Version None)
Quarter: 2012Q2

REPORT INFORMATION
  Report Type: 
  Country: None (occurrence: None)
  Receive Date: 20120627
  Receipt Date: 20120621
  Transmission Date: 20120825
  Serious: Yes (Death, Hospitalization)
  Sender: FDA-Public Use
  Company Number: US-MERCK-1204USA02998

PATIENT
  Age: 83 Year
  Sex: Male
  Weight: 65 kg

DRUGS (5)
  1. JANUVIA [Suspect]
     Indication: DIABETES MELLITUS
     Route: 048
     Dates: start: 20110101
  2. GLUCOTROL [Suspect]
     Indication: HERPES ZOSTER
     Route: 048
  3. NORVASC [Suspect]
     Indication: HYPERTENSION
     Route: 048
  4. FENTANYL CITRATE [Suspect]
     Indication: NEUROPATHY PERIPHERAL
     Dosage: PATCH /EVERY 72 HOURS
     Route: 065
     Dates: start: 20110101
  5. NEURONTIN [Suspect]
     Route: 065
     Dates: start: 20110101

REACTIONS (5)
  - SEPSIS [None]
  - RENAL FAILURE ACUTE [None]
  - MALAISE [None]
  - URINARY TRACT INFECTION [None]
  - MYOCARDIAL INFARCTION [None]
